FAERS Safety Report 15767996 (Version 1)
Quarter: 2018Q4

REPORT INFORMATION
  Report Type: Spontaneous
  Country: IL (occurrence: IL)
  Receive Date: 20181227
  Receipt Date: 20181227
  Transmission Date: 20190205
  Serious: Yes (Other)
  Sender: FDA-Public Use
  Company Number: IL-ALLERGAN-1859520US

PATIENT
  Age: 68 Year
  Sex: Female

DRUGS (1)
  1. RISEDRONATE SODIUM - BP [Suspect]
     Active Substance: RISEDRONATE SODIUM
     Indication: OSTEOPOROSIS
     Dosage: 150 MG, ONCE A MONTH
     Route: 065
     Dates: start: 20180705

REACTIONS (4)
  - Pain [Unknown]
  - Abdominal pain [Unknown]
  - Asthenia [Unknown]
  - Asphyxia [Unknown]
